FAERS Safety Report 9426580 (Version 1)
Quarter: 2013Q3

REPORT INFORMATION
  Report Type: Spontaneous
  Country: US (occurrence: US)
  Receive Date: 20130730
  Receipt Date: 20130730
  Transmission Date: 20140515
  Serious: No
  Sender: FDA-Public Use
  Company Number: US-PFIZER INC-2013218736

PATIENT
  Sex: Male

DRUGS (1)
  1. NARDIL [Suspect]
     Dosage: UNK

REACTIONS (2)
  - Joint injury [Unknown]
  - Arthralgia [Unknown]
